FAERS Safety Report 6030990-5 (Version None)
Quarter: 2009Q1

REPORT INFORMATION
  Report Type: 
  Country: None (occurrence: None)
  Receive Date: 20090106
  Receipt Date: 20090106
  Transmission Date: 20090719
  Serious: Yes (Hospitalization, Disabling)
  Sender: FDA-Public Use
  Company Number: None

PATIENT
  Age: 46 Year
  Sex: Female
  Weight: 98.8842 kg

DRUGS (1)
  1. CIPROFLOXACIN HCL [Suspect]
     Indication: PROPHYLAXIS
     Dosage: 500 MG 2X A DAY- 5 DAYS PO
     Route: 048

REACTIONS (3)
  - ABASIA [None]
  - ARTHRALGIA [None]
  - TENDONITIS [None]
